FAERS Safety Report 4614685-8 (Version None)
Quarter: 2005Q2

REPORT INFORMATION
  Report Type: 
  Country: None (occurrence: None)
  Receive Date: 20050311
  Receipt Date: 20050120
  Transmission Date: 20051028
  Serious: No
  Sender: FDA-Public Use
  Company Number: 2005-BP-01029BP

PATIENT
  Sex: Female

DRUGS (7)
  1. SPIRIVA [Suspect]
     Indication: CHRONIC OBSTRUCTIVE PULMONARY DISEASE
     Dosage: 18 MCG  (18 MCG), IH
     Route: 055
     Dates: start: 20040601
  2. SPIRIVA [Suspect]
     Indication: EMPHYSEMA
  3. ALBUTEROL [Concomitant]
  4. SINGULAIR (MONTELUKAST) [Concomitant]
  5. DILANTIN [Concomitant]
  6. PAXIL [Concomitant]
  7. ALBUTEROL [Concomitant]

REACTIONS (2)
  - ASTHENIA [None]
  - DYSPNOEA EXACERBATED [None]
